FAERS Safety Report 5815712-2 (Version None)
Quarter: 2008Q3

REPORT INFORMATION
  Report Type: 
  Country: None (occurrence: None)
  Receive Date: 20080721
  Receipt Date: 20080711
  Transmission Date: 20090109
  Serious: Yes (Hospitalization, Other)
  Sender: FDA-Public Use
  Company Number: DE-BRISTOL-MYERS SQUIBB COMPANY-14266928

PATIENT
  Sex: Female

DRUGS (2)
  1. ENDOXAN [Suspect]
     Indication: GLOMERULONEPHRITIS
     Route: 065
     Dates: start: 20020101
  2. METHIMAZOLE [Suspect]
     Indication: GLOMERULONEPHRITIS
     Route: 065

REACTIONS (2)
  - DRUG INTERACTION [None]
  - NEUTROPENIA [None]
